FAERS Safety Report 4370139-8 (Version None)
Quarter: 2004Q2

REPORT INFORMATION
  Report Type: 
  Country: None (occurrence: None)
  Receive Date: 20040603
  Receipt Date: 20040421
  Transmission Date: 20050107
  Serious: No
  Sender: FDA-Public Use
  Company Number: US-BRISTOL-MYERS SQUIBB COMPANY-12566717

PATIENT
  Age: 10 Year
  Sex: Female
  Weight: 59 kg

DRUGS (1)
  1. ABILIFY [Suspect]
     Indication: DISTURBANCE IN ATTENTION
     Dosage: INITIATED AT 2.5 MG/DAY
     Route: 048
     Dates: start: 20030626

REACTIONS (4)
  - EYE ROLLING [None]
  - FEELING ABNORMAL [None]
  - SOMNOLENCE [None]
  - WEIGHT INCREASED [None]
